FAERS Safety Report 16109339 (Version 2)
Quarter: 2019Q3

REPORT INFORMATION
  Report Type: Spontaneous
  Country: US (occurrence: US)
  Receive Date: 20190324
  Receipt Date: 20190711
  Transmission Date: 20191004
  Serious: No
  Sender: FDA-Public Use
  Company Number: US-TEVA-2019-US-1029028

PATIENT
  Sex: Female
  Weight: 77.11 kg

DRUGS (2)
  1. ELETRIPTAN HYDROBROMIDE. [Suspect]
     Active Substance: ELETRIPTAN HYDROBROMIDE
     Indication: MIGRAINE
     Route: 048
     Dates: start: 20190131, end: 20190212
  2. TORODOL [Concomitant]

REACTIONS (2)
  - Pain [Unknown]
  - Burning sensation [Unknown]
